FAERS Safety Report 8958598 (Version 1)
Quarter: 2012Q4

REPORT INFORMATION
  Report Type: Spontaneous
  Country: US (occurrence: None)
  Receive Date: 20121205
  Receipt Date: 20121205
  Transmission Date: 20130627
  Serious: Yes (Disabling)
  Sender: FDA-Public Use
  Company Number: None

PATIENT
  Age: 56 Year
  Sex: Male
  Weight: 88.45 kg

DRUGS (1)
  1. ATORVASTATIN [Suspect]
     Indication: BLOOD CHOLESTEROL
     Dosage: 20 MG  1-DAY
     Dates: start: 20120901, end: 20121101

REACTIONS (4)
  - Dizziness [None]
  - Nausea [None]
  - Arthralgia [None]
  - Gastrooesophageal reflux disease [None]
